FAERS Safety Report 12668293 (Version 4)
Quarter: 2017Q1

REPORT INFORMATION
  Report Type: Spontaneous
  Country: BR (occurrence: BR)
  Receive Date: 20160819
  Receipt Date: 20170224
  Transmission Date: 20170428
  Serious: Yes (Life-Threatening, Hospitalization, Other)
  Sender: FDA-Public Use
  Company Number: BR-ALEXION PHARMACEUTICALS INC.-A201606075

PATIENT
  Age: 22 Year
  Sex: Male

DRUGS (2)
  1. SOLIRIS [Suspect]
     Active Substance: ECULIZUMAB
     Dosage: 1200 MG, Q2W
     Route: 042
     Dates: start: 20160729
  2. SOLIRIS [Suspect]
     Active Substance: ECULIZUMAB
     Indication: HAEMOLYTIC URAEMIC SYNDROME
     Dosage: 900 MG, QW FOR 4 WEEKS
     Route: 042
     Dates: start: 20160702, end: 20160722

REACTIONS (10)
  - Anaemia [Unknown]
  - Renal disorder [Unknown]
  - Seizure [Recovering/Resolving]
  - Device related infection [Recovering/Resolving]
  - Thrombocytopenia [Unknown]
  - Pyrexia [Not Recovered/Not Resolved]
  - Blood creatinine [Unknown]
  - Infection [Unknown]
  - Diabetes mellitus [Unknown]
  - Sepsis [Recovering/Resolving]

NARRATIVE: CASE EVENT DATE: 20160810
